FAERS Safety Report 24148488 (Version 2)
Quarter: 2024Q3

REPORT INFORMATION
  Report Type: Spontaneous
  Country: US (occurrence: US)
  Receive Date: 20240729
  Receipt Date: 20240826
  Transmission Date: 20241017
  Serious: Yes (Death, Other)
  Sender: DR REDDYS
  Company Number: US-E2BLSMVVAL-SPO/USA/24/0010786

PATIENT
  Age: 21 Year
  Sex: Male

DRUGS (4)
  1. ACCUTANE [Suspect]
     Active Substance: ISOTRETINOIN
     Indication: Product used for unknown indication
  2. ZENATANE [Suspect]
     Active Substance: ISOTRETINOIN
     Indication: Product used for unknown indication
  3. ZENATANE [Suspect]
     Active Substance: ISOTRETINOIN
  4. ZENATANE [Suspect]
     Active Substance: ISOTRETINOIN

REACTIONS (9)
  - Completed suicide [Fatal]
  - Pain [Unknown]
  - Abdominal pain upper [Unknown]
  - Headache [Unknown]
  - Skin disorder [Unknown]
  - Anxiety [Unknown]
  - Panic attack [Unknown]
  - Hallucination, auditory [Unknown]
  - Therapy cessation [Unknown]

NARRATIVE: CASE EVENT DATE: 20240706
